FAERS Safety Report 17433414 (Version 1)
Quarter: 2020Q1

REPORT INFORMATION
  Report Type: Spontaneous
  Country: DK (occurrence: DK)
  Receive Date: 20200219
  Receipt Date: 20200219
  Transmission Date: 20200409
  Serious: Yes (Life-Threatening, Hospitalization)
  Sender: FDA-Public Use
  Company Number: DK-ASTRAZENECA-2020SE23679

PATIENT
  Sex: Male

DRUGS (15)
  1. FARMIDUR [Concomitant]
     Indication: ANGINA PECTORIS
     Dosage: STYRKE: 30 MG
     Route: 048
     Dates: start: 20181003
  2. OXYCODONE [Concomitant]
     Active Substance: OXYCODONE
     Indication: PAIN
     Dosage: STYRKE: VARIERENDE MELLEM 5-20 MG DOSIS: VARIERENDE.
     Route: 048
     Dates: start: 20190103
  3. MAGNYL [Concomitant]
     Indication: THROMBOSIS PROPHYLAXIS
     Dosage: STYRKE: 75 MG
     Route: 048
     Dates: start: 20180720
  4. COZAAR [Concomitant]
     Active Substance: LOSARTAN POTASSIUM
     Indication: HYPERTENSION
     Dosage: STYRKE: 50+12,5 MG
     Route: 048
     Dates: start: 20170322
  5. METOPROLOL TARTRATE. [Concomitant]
     Active Substance: METOPROLOL TARTRATE
     Indication: HYPERTENSION
     Dosage: STYRKE: 50 MG
     Route: 048
     Dates: start: 20170629
  6. PANODIL [Concomitant]
     Active Substance: ACETAMINOPHEN
     Indication: PAIN
     Dosage: STYRKE: 500 MG
     Route: 048
     Dates: start: 20180320
  7. METFORMIN [Suspect]
     Active Substance: METFORMIN HYDROCHLORIDE
     Indication: TYPE 2 DIABETES MELLITUS
     Dosage: STYRKE: 500 MG
     Route: 048
     Dates: start: 2016, end: 20200116
  8. ESOMEPRAZOL [Concomitant]
     Active Substance: ESOMEPRAZOLE
     Indication: GASTRIC ULCER
     Dosage: STYRKE: 20 MG
     Route: 048
     Dates: start: 20191008
  9. IMOZOP [Concomitant]
     Active Substance: ZOPICLONE
     Indication: INSOMNIA
     Dosage: STYRKE: 7,5 MG7.5MG UNKNOWN
     Route: 048
     Dates: start: 20191217
  10. STESOLID [Concomitant]
     Active Substance: DIAZEPAM
     Indication: SEDATIVE THERAPY
     Dosage: STYRKE: VARIATON 2-5 MG DOSIS: VARIERENDE.
     Route: 048
     Dates: start: 201512
  11. FORXIGA [Suspect]
     Active Substance: DAPAGLIFLOZIN
     Indication: TYPE 2 DIABETES MELLITUS
     Route: 048
     Dates: start: 20170922
  12. FORXIGA [Suspect]
     Active Substance: DAPAGLIFLOZIN
     Indication: TYPE 2 DIABETES MELLITUS
     Route: 048
     Dates: start: 2017, end: 20200116
  13. ATORVASTATIN [Concomitant]
     Active Substance: ATORVASTATIN
     Indication: CARDIOVASCULAR EVENT PROPHYLAXIS
     Dosage: STYRKE: 80 MG
     Route: 048
     Dates: start: 20181003
  14. CIPRAMIL [Concomitant]
     Indication: DEPRESSION
     Dosage: STYRKE: 40 MG
     Route: 048
     Dates: start: 20151222
  15. PHENERGAN [Concomitant]
     Active Substance: PROMETHAZINE HYDROCHLORIDE
     Indication: INSOMNIA
     Dosage: STYRKE: 25 MG
     Route: 048
     Dates: start: 20191202

REACTIONS (3)
  - Lactic acidosis [Recovered/Resolved]
  - Diabetic ketoacidosis [Recovered/Resolved]
  - Renal failure [Not Recovered/Not Resolved]

NARRATIVE: CASE EVENT DATE: 202001
